FAERS Safety Report 21162718 (Version 3)
Quarter: 2022Q4

REPORT INFORMATION
  Report Type: Spontaneous
  Country: KR (occurrence: KR)
  Receive Date: 20220802
  Receipt Date: 20221018
  Transmission Date: 20230113
  Serious: Yes (Hospitalization, Other)
  Sender: FDA-Public Use
  Company Number: KR-GW PHARMA-2022-KR-025006

PATIENT
  Age: 16 Year
  Sex: Male
  Weight: 40 kg

DRUGS (6)
  1. CANNABIDIOL [Suspect]
     Active Substance: CANNABIDIOL
     Indication: Lennox-Gastaut syndrome
     Dosage: 1.5 MILLILITER, BID
     Route: 048
     Dates: start: 20220711
  2. CANNABIDIOL [Suspect]
     Active Substance: CANNABIDIOL
     Dosage: 5 MILLIGRAM/KILOGRAM
     Route: 048
  3. CANNABIDIOL [Suspect]
     Active Substance: CANNABIDIOL
     Dosage: 7.5 MILLIGRAM/KILOGRAM, QD
     Route: 048
  4. CANNABIDIOL [Suspect]
     Active Substance: CANNABIDIOL
     Dosage: 1.5 CC, BID
     Route: 048
     Dates: start: 20220711, end: 20220724
  5. CLOBAZAM [Concomitant]
     Active Substance: CLOBAZAM
     Indication: Product used for unknown indication
     Dosage: UNK
  6. PHENYTOIN [Concomitant]
     Active Substance: PHENYTOIN
     Indication: Product used for unknown indication
     Dosage: UNK

REACTIONS (4)
  - Jaundice [Recovered/Resolved]
  - Eye movement disorder [Recovered/Resolved]
  - Productive cough [Recovered/Resolved]
  - Vomiting [Recovered/Resolved]

NARRATIVE: CASE EVENT DATE: 20220721
